FAERS Safety Report 9796066 (Version 2)
Quarter: 2014Q1

REPORT INFORMATION
  Report Type: Other
  Country: TN (occurrence: TN)
  Receive Date: 20140103
  Receipt Date: 20140103
  Transmission Date: 20141002
  Serious: Yes (Other)
  Sender: FDA-Public Use
  Company Number: TN-BRISTOL-MYERS SQUIBB COMPANY-19954668

PATIENT
  Age: 57 Year
  Sex: Male

DRUGS (4)
  1. ETOPOSIDE [Suspect]
     Indication: PANCREATIC CARCINOMA METASTATIC
     Dosage: FROM DAY 1-3.?4TH CYCLE 07/12/2012.
  2. STREPTOZOCIN [Concomitant]
     Indication: PANCREATIC CARCINOMA METASTATIC
     Dosage: CHEMOTHERAPY
  3. DOXORUBICIN [Concomitant]
     Indication: PANCREATIC CARCINOMA METASTATIC
     Dosage: CHEMOTHERAPY
  4. CISPLATIN [Concomitant]
     Indication: PANCREATIC CARCINOMA METASTATIC
     Dosage: DAY 1

REACTIONS (1)
  - Atrial fibrillation [Unknown]
